FAERS Safety Report 9675910 (Version 7)
Quarter: 2014Q1

REPORT INFORMATION
  Report Type: Spontaneous
  Country: ES (occurrence: ES)
  Receive Date: 20131107
  Receipt Date: 20140211
  Transmission Date: 20141002
  Serious: Yes (Other)
  Sender: FDA-Public Use
  Company Number: ES-AMGEN-ESPSP2013077607

PATIENT
  Age: 34 Year
  Sex: Female

DRUGS (4)
  1. ENBREL [Suspect]
     Indication: PSORIATIC ARTHROPATHY
     Dosage: 50 MG, WEEKLY
     Route: 058
     Dates: start: 20131017, end: 20131022
  2. METHOTREXATE SODIUM [Suspect]
     Indication: PSORIATIC ARTHROPATHY
     Dosage: 0.66 CM3 WEEKLY
     Route: 065
     Dates: start: 2011, end: 201312
  3. EUTIROX [Concomitant]
     Indication: THYROID THERAPY
     Dosage: ^88^, 1X/DAY
  4. FOLIC ACID [Concomitant]
     Dosage: 2 TABLETS THE SAME DAY METHOTREXATE IS INJECTED AND 2 TABLETS THE FOLLOWING DAY

REACTIONS (13)
  - Blindness transient [Recovered/Resolved]
  - Visual brightness [Recovered/Resolved]
  - Eye pain [Recovered/Resolved]
  - Headache [Recovered/Resolved]
  - Photosensitivity reaction [Recovered/Resolved]
  - Lymphocyte percentage decreased [Recovered/Resolved]
  - Psoriatic arthropathy [Unknown]
  - Pain [Unknown]
  - Malaise [Unknown]
  - Decreased immune responsiveness [Unknown]
  - Drug ineffective [Unknown]
  - Alanine aminotransferase increased [Recovered/Resolved]
  - Aspartate aminotransferase increased [Recovered/Resolved]
